FAERS Safety Report 17812606 (Version 1)
Quarter: 2020Q2

REPORT INFORMATION
  Report Type: Spontaneous
  Country: FR (occurrence: FR)
  Receive Date: 20200521
  Receipt Date: 20200521
  Transmission Date: 20200714
  Serious: Yes (Hospitalization)
  Sender: FDA-Public Use
  Company Number: FR-MYLANLABS-2020M1049322

PATIENT
  Age: 72 Year
  Sex: Male
  Weight: 82 kg

DRUGS (1)
  1. AMIODARONE [Suspect]
     Active Substance: AMIODARONE
     Indication: ATRIAL FIBRILLATION
     Dosage: 200 MILLIGRAM, QD
     Route: 048
     Dates: start: 20191024

REACTIONS (1)
  - Polyneuropathy [Unknown]

NARRATIVE: CASE EVENT DATE: 20191214
